FAERS Safety Report 25554296 (Version 1)
Quarter: 2025Q3

REPORT INFORMATION
  Report Type: Spontaneous
  Country: US (occurrence: None)
  Receive Date: 20250714
  Receipt Date: 20250714
  Transmission Date: 20251020
  Serious: Yes (Other)
  Sender: FDA-CTU
  Company Number: None

PATIENT
  Age: 65 Year
  Sex: Male
  Weight: 90 kg

DRUGS (1)
  1. OPZELURA [Suspect]
     Active Substance: RUXOLITINIB PHOSPHATE
     Indication: Vitiligo
     Route: 061
     Dates: start: 20230717, end: 20240103

REACTIONS (4)
  - Eye irritation [None]
  - Eye inflammation [None]
  - Eye discharge [None]
  - Eye disorder [None]

NARRATIVE: CASE EVENT DATE: 20240103
